FAERS Safety Report 5875871-2 (Version None)
Quarter: 2008Q3

REPORT INFORMATION
  Report Type: 
  Country: None (occurrence: None)
  Receive Date: 20080908
  Receipt Date: 20080812
  Transmission Date: 20090109
  Serious: Yes (Other)
  Sender: FDA-Public Use
  Company Number: ADE# 08-126

PATIENT
  Sex: Female

DRUGS (2)
  1. CLOZAPINE [Suspect]
     Dosage: 600MG DAILY
     Dates: start: 20080601
  2. COGENTIN [Concomitant]

REACTIONS (1)
  - RASH [None]
